FAERS Safety Report 6193282-X (Version None)
Quarter: 2009Q2

REPORT INFORMATION
  Report Type: 
  Country: None (occurrence: None)
  Receive Date: 20090518
  Receipt Date: 20090512
  Transmission Date: 20091009
  Serious: Yes (Other)
  Sender: FDA-Public Use
  Company Number: D0061617A

PATIENT
  Sex: Female

DRUGS (2)
  1. FLUTIDE [Suspect]
     Route: 065
  2. ATEMUR [Concomitant]
     Route: 065

REACTIONS (1)
  - ASTHMA [None]
